FAERS Safety Report 25776110 (Version 1)
Quarter: 2025Q3

REPORT INFORMATION
  Report Type: Spontaneous
  Country: US (occurrence: US)
  Receive Date: 20250909
  Receipt Date: 20250909
  Transmission Date: 20251021
  Serious: No
  Sender: DOMPE FARMACEUTICI
  Company Number: US-FARMAPROD-202408-2895

PATIENT
  Sex: Male

DRUGS (5)
  1. OXERVATE [Suspect]
     Active Substance: CENEGERMIN-BKBJ
     Indication: Dry eye
     Route: 047
     Dates: start: 20240702
  2. SYSTANE (HYPROMELLOSE 2910 (4000 MPA.S)) [Concomitant]
     Active Substance: HYPROMELLOSE 2910 (4000 MPA.S)
  3. LOTEMAX [Concomitant]
     Active Substance: LOTEPREDNOL ETABONATE
  4. XIIDRA [Concomitant]
     Active Substance: LIFITEGRAST
  5. TYRVAYA [Concomitant]
     Active Substance: VARENICLINE TARTRATE

REACTIONS (4)
  - Eye irritation [Unknown]
  - Eye irritation [Unknown]
  - Eye inflammation [Unknown]
  - Eye pain [Unknown]
